FAERS Safety Report 4645688-5 (Version None)
Quarter: 2005Q2

REPORT INFORMATION
  Report Type: 
  Country: None (occurrence: None)
  Receive Date: 20050331
  Receipt Date: 20050218
  Transmission Date: 20051028
  Serious: No
  Sender: FDA-Public Use
  Company Number: 05P-163-0291813-00

PATIENT
  Age: 73 Year
  Sex: Female
  Weight: 58.9676 kg

DRUGS (5)
  1. HUMIRA [Suspect]
     Indication: RHEUMATOID ARTHRITIS
     Dosage: 40 MG, 1 IN 2 WK, SUBCUTANEOUS
     Route: 058
     Dates: start: 20030501
  2. PREDNISONE [Concomitant]
  3. GLIMEPIRIDE [Concomitant]
  4. VERAPAMIL [Concomitant]
  5. VALSARTAN [Concomitant]

REACTIONS (4)
  - BALANCE DISORDER [None]
  - HEART RATE IRREGULAR [None]
  - PRURITUS [None]
  - STOMATITIS [None]
